FAERS Safety Report 17272925 (Version 1)
Quarter: 2020Q1

REPORT INFORMATION
  Report Type: Spontaneous
  Country: US (occurrence: US)
  Receive Date: 20200115
  Receipt Date: 20200115
  Transmission Date: 20200409
  Serious: No
  Sender: FDA-Public Use
  Company Number: US-BAYER-2020-001108

PATIENT
  Sex: Male

DRUGS (1)
  1. LEVITRA [Suspect]
     Active Substance: VARDENAFIL HYDROCHLORIDE
     Dosage: UNK

REACTIONS (1)
  - Headache [None]
